FAERS Safety Report 10375357 (Version 3)
Quarter: 2015Q1

REPORT INFORMATION
  Report Type: Report from Study
  Country: GB (occurrence: GB)
  Receive Date: 20140811
  Receipt Date: 20150327
  Transmission Date: 20150720
  Serious: Yes (Hospitalization)
  Sender: FDA-Public Use
  Company Number: GB-PFIZER INC-2014216259

PATIENT
  Age: 29 Year
  Sex: Female
  Weight: 77 kg

DRUGS (1)
  1. CRIZOTINIB [Suspect]
     Active Substance: CRIZOTINIB
     Indication: ALVEOLAR SOFT PART SARCOMA
     Dosage: 250 MG, 2X/DAY
     Route: 048
     Dates: start: 20140605, end: 20140716

REACTIONS (1)
  - Oesophageal ulcer [Recovered/Resolved]

NARRATIVE: CASE EVENT DATE: 20140716
